FAERS Safety Report 14598570 (Version 1)
Quarter: 2018Q1

REPORT INFORMATION
  Report Type: Spontaneous
  Country: US (occurrence: US)
  Receive Date: 20180305
  Receipt Date: 20180305
  Transmission Date: 20180509
  Serious: No
  Sender: FDA-Public Use
  Company Number: US-BIOGEN-2018BI00515839

PATIENT
  Age: 52 Year
  Sex: Female

DRUGS (1)
  1. TYSABRI [Suspect]
     Active Substance: NATALIZUMAB
     Indication: MULTIPLE SCLEROSIS
     Route: 065
     Dates: start: 20150811

REACTIONS (5)
  - Blood immunoglobulin G decreased [Not Recovered/Not Resolved]
  - Biliary colic [Not Recovered/Not Resolved]
  - Bronchitis [Recovered/Resolved]
  - Immunoglobulins decreased [Unknown]
  - Thermal burn [Not Recovered/Not Resolved]

NARRATIVE: CASE EVENT DATE: 201704
